FAERS Safety Report 23461907 (Version 2)
Quarter: 2024Q1

REPORT INFORMATION
  Report Type: Spontaneous
  Country: IN (occurrence: IN)
  Receive Date: 20240131
  Receipt Date: 20240205
  Transmission Date: 20240409
  Serious: Yes (Life-Threatening, Other)
  Sender: FDA-Public Use
  Company Number: IN-MLMSERVICE-20240123-4791380-1

PATIENT
  Age: 53 Year
  Sex: Female

DRUGS (1)
  1. METHYLPREDNISOLONE [Suspect]
     Active Substance: METHYLPREDNISOLONE
     Indication: COVID-19
     Dosage: 16 MG
     Route: 048

REACTIONS (4)
  - Sinusitis fungal [Recovered/Resolved]
  - Actinomycosis [Recovered/Resolved]
  - Mucormycosis [Recovered/Resolved]
  - Off label use [Unknown]
